FAERS Safety Report 11058000 (Version 1)
Quarter: 2015Q2

REPORT INFORMATION
  Report Type: Spontaneous
  Country: US (occurrence: None)
  Receive Date: 20150421
  Receipt Date: 20150421
  Transmission Date: 20150821
  Serious: Yes (Other)
  Sender: FDA-Public Use
  Company Number: FK201501788

PATIENT
  Age: 60 Year
  Sex: Female

DRUGS (3)
  1. EPINEPHRINE. [Suspect]
     Active Substance: EPINEPHRINE
     Indication: HAEMODYNAMIC INSTABILITY
     Dosage: NOT OTHERWISE SPECIFIED
     Route: 042
  2. NOREPINEPHRINE [Suspect]
     Active Substance: NOREPINEPHRINE\NOREPINEPHRINE BITARTRATE
     Indication: HAEMODYNAMIC INSTABILITY
     Dosage: NOT OTHERWISE SPECIFIED
     Route: 042
  3. VASOPRESSIN INJECTION [Suspect]
     Active Substance: VASOPRESSIN
     Indication: HAEMODYNAMIC INSTABILITY
     Dosage: NOT OTHERWISE SPECIFIED
     Route: 042

REACTIONS (4)
  - Catheter site extravasation [None]
  - Chest wall necrosis [None]
  - Product use issue [None]
  - Breast necrosis [None]
